FAERS Safety Report 10420316 (Version 2)
Quarter: 2014Q4

REPORT INFORMATION
  Report Type: Spontaneous
  Country: US (occurrence: None)
  Receive Date: 20140701
  Receipt Date: 20141223
  Transmission Date: 20150528
  Serious: No
  Sender: FDA-Public Use
  Company Number: 1000066181

PATIENT
  Age: 89 Year
  Sex: Male

DRUGS (2)
  1. LINZESS [Suspect]
     Active Substance: LINACLOTIDE
     Indication: CONSTIPATION
     Route: 048
     Dates: start: 20140314
  2. PACERONE (AMIODARONE HYDORCHLORIDE) [Concomitant]

REACTIONS (2)
  - Hypotension [None]
  - Hypertension [None]

NARRATIVE: CASE EVENT DATE: 2014
